FAERS Safety Report 5000229-8 (Version None)
Quarter: 2006Q2

REPORT INFORMATION
  Report Type: 
  Country: None (occurrence: None)
  Receive Date: 20060511
  Receipt Date: 20020618
  Transmission Date: 20061013
  Serious: Yes (Life-Threatening, Hospitalization, Disabling)
  Sender: FDA-Public Use
  Company Number: US-MERCK-0206USA01839

PATIENT
  Age: 58 Year
  Sex: Female
  Weight: 86 kg

DRUGS (16)
  1. VIOXX [Suspect]
     Indication: OSTEOARTHRITIS
     Route: 048
  2. VIOXX [Suspect]
     Route: 048
  3. VIOXX [Suspect]
     Route: 048
  4. VIOXX [Suspect]
     Route: 048
  5. VITAMIN E [Concomitant]
     Route: 065
  6. PYRIDOXINE [Concomitant]
     Route: 065
  7. CYANOCOBALAMIN [Concomitant]
     Route: 065
  8. COZAAR [Concomitant]
     Route: 048
  9. CELEBREX [Concomitant]
     Route: 065
  10. COVERA-HS [Concomitant]
     Route: 065
  11. IMITREX [Concomitant]
     Route: 065
  12. ZESTRIL [Concomitant]
     Route: 065
  13. ASPIRIN [Concomitant]
     Route: 048
  14. CHONDROITIN SULFATE SODIUM AND GLUCOSAMINE HYDROCHLORIDE [Concomitant]
     Route: 065
  15. FOLIC ACID [Concomitant]
     Route: 065
  16. PREMPRO [Concomitant]
     Indication: MENOPAUSE
     Route: 048
     Dates: end: 20001201

REACTIONS (25)
  - ANAEMIA [None]
  - ANGINA PECTORIS [None]
  - ANTIBODY TEST ABNORMAL [None]
  - ANXIETY [None]
  - ARTHROPATHY [None]
  - BACK PAIN [None]
  - CONFUSIONAL STATE [None]
  - CONSTIPATION [None]
  - DEEP VEIN THROMBOSIS [None]
  - DIASTOLIC DYSFUNCTION [None]
  - DYSPNOEA EXERTIONAL [None]
  - FEAR [None]
  - HAEMATOMA [None]
  - HYPERLIPIDAEMIA [None]
  - HYPERTENSION [None]
  - HYPERTRIGLYCERIDAEMIA [None]
  - INSOMNIA [None]
  - OSTEOARTHRITIS [None]
  - PAIN [None]
  - PULMONARY EMBOLISM [None]
  - RECTAL HAEMORRHAGE [None]
  - ROAD TRAFFIC ACCIDENT [None]
  - SPINAL COLUMN STENOSIS [None]
  - THROMBOSIS [None]
  - URGE INCONTINENCE [None]
